FAERS Safety Report 5079278-X (Version None)
Quarter: 2006Q3

REPORT INFORMATION
  Report Type: 
  Country: None (occurrence: None)
  Receive Date: 20060814
  Receipt Date: 20020806
  Transmission Date: 20061208
  Serious: Yes (Hospitalization)
  Sender: FDA-Public Use
  Company Number: US-MERCK-0208USA02116

PATIENT
  Age: 67 Year
  Sex: Male

DRUGS (16)
  1. ZOCOR [Suspect]
     Indication: HYPERLIPIDAEMIA
     Route: 048
     Dates: end: 20010801
  2. ZOCOR [Suspect]
     Route: 048
  3. SOTALOL HYDROCHLORIDE [Concomitant]
     Route: 048
  4. PRINIVIL [Concomitant]
     Route: 048
  5. ISOSORBIDE DINITRATE [Concomitant]
     Route: 048
  6. IPRATROPIUM BROMIDE [Concomitant]
     Route: 055
  7. GLYBURIDE [Concomitant]
     Route: 048
  8. LASIX [Concomitant]
     Route: 048
  9. FELODIPINE [Concomitant]
     Route: 048
  10. DOCUSATE SODIUM [Concomitant]
     Route: 048
  11. ASPIRIN [Concomitant]
     Route: 048
  12. ALBUTEROL [Concomitant]
     Route: 055
  13. NITROGLYCERIN [Concomitant]
     Route: 048
  14. GUAIFENESIN [Concomitant]
     Route: 065
  15. GEMFIBROZIL [Suspect]
     Route: 048
     Dates: start: 20010724, end: 20010801
  16. NIACIN [Concomitant]
     Route: 048

REACTIONS (30)
  - ADRENAL INSUFFICIENCY [None]
  - ALPHA HAEMOLYTIC STREPTOCOCCAL INFECTION [None]
  - ANAEMIA [None]
  - ASTHENIA [None]
  - ATRIAL FIBRILLATION [None]
  - BLOOD BLISTER [None]
  - CARDIAC FAILURE CONGESTIVE [None]
  - CULTURE URINE POSITIVE [None]
  - DIABETES MELLITUS INSULIN-DEPENDENT [None]
  - DRUG ADMINISTRATION ERROR [None]
  - ENTEROBACTER SEPSIS [None]
  - ESCHERICHIA INFECTION [None]
  - HAEMODIALYSIS [None]
  - HEPATITIS [None]
  - HYPOTENSION [None]
  - ILEUS [None]
  - MALNUTRITION [None]
  - METABOLIC ACIDOSIS [None]
  - MULTI-ORGAN FAILURE [None]
  - MYOCARDIAL INFARCTION [None]
  - NEPHROTIC SYNDROME [None]
  - ORAL CANDIDIASIS [None]
  - RENAL FAILURE ACUTE [None]
  - RENAL TUBULAR NECROSIS [None]
  - RESPIRATORY FAILURE [None]
  - RHABDOMYOLYSIS [None]
  - SEPSIS [None]
  - SERRATIA INFECTION [None]
  - STAPHYLOCOCCAL INFECTION [None]
  - THERAPY NON-RESPONDER [None]
